FAERS Safety Report 8652218 (Version 5)
Quarter: 2013Q4

REPORT INFORMATION
  Report Type: Report from Study
  Country: JP (occurrence: JP)
  Receive Date: 20120706
  Receipt Date: 20131125
  Transmission Date: 20140711
  Serious: Yes (Other)
  Sender: FDA-Public Use
  Company Number: PHHY2011JP112757

PATIENT
  Age: 62 Year
  Sex: Female

DRUGS (28)
  1. ANPLAG [Concomitant]
     Indication: PROPHYLAXIS
     Dosage: 300 MG, UNK
     Route: 048
     Dates: start: 20120822
  2. CELECOX [Concomitant]
     Indication: BACK PAIN
     Dosage: 300 MG, UNK
     Route: 048
     Dates: start: 20120921
  3. PRORENAL [Concomitant]
     Indication: PERIPHERAL ARTERY STENOSIS
     Dosage: 15 UG, UNK
     Route: 048
     Dates: start: 20111206
  4. AMN107 [Suspect]
     Indication: CHRONIC MYELOID LEUKAEMIA
     Dosage: 400 MG, DAILY
     Route: 048
     Dates: start: 20110107
  5. UNIPHLY LA [Concomitant]
     Indication: BRONCHITIS CHRONIC
     Dosage: 400 MG, UNK
     Route: 048
     Dates: start: 20110107, end: 20130110
  6. MUCODYNE [Concomitant]
     Indication: BRONCHITIS CHRONIC
     Dosage: 1500 MG, UNK
     Route: 048
     Dates: start: 20110107, end: 20130110
  7. HOKUNALIN [Concomitant]
     Indication: CHRONIC MYELOID LEUKAEMIA
     Dosage: 2 MG, TID
     Route: 062
     Dates: start: 20110107, end: 20110603
  8. ADONA [Concomitant]
     Indication: GASTROINTESTINAL ANGIODYSPLASIA
     Dosage: 90 MG, UNK
     Route: 048
     Dates: start: 20110121, end: 20110221
  9. TRANSAMIN [Concomitant]
     Indication: GASTROINTESTINAL ANGIODYSPLASIA
     Dosage: 750 MG, UNK
     Route: 048
     Dates: start: 20110121, end: 20110221
  10. PENTASA [Concomitant]
     Indication: CONSTIPATION
     Dosage: 1500 MG, UNK
     Route: 048
     Dates: start: 20110121, end: 20110221
  11. GASTROM [Concomitant]
     Indication: CONSTIPATION
     Dosage: 3 G, UNK
     Route: 048
     Dates: start: 20110121, end: 20130110
  12. PREDONINE [Concomitant]
     Dosage: 20 MG
     Route: 048
     Dates: start: 20110619
  13. PREDONINE [Concomitant]
     Dosage: 20 MG
  14. PREDONINE [Concomitant]
     Dosage: 10 MG
     Route: 048
     Dates: end: 20110811
  15. HARNAL [Concomitant]
     Dosage: 15 MG, UNK
     Route: 048
     Dates: start: 20111206
  16. SPIRIVA [Concomitant]
     Indication: BRONCHITIS CHRONIC
     Dosage: 18 UG, UNK
     Dates: start: 20111206
  17. MECOBALAMIN [Concomitant]
     Indication: PERIPHERAL ARTERY STENOSIS
     Dosage: 1500 UG, UNK
     Route: 048
     Dates: start: 20111206
  18. LOXONIN [Concomitant]
     Indication: BACK PAIN
     Dosage: 60 MG, UNK
     Route: 048
     Dates: start: 20110227, end: 20110427
  19. HALCION [Concomitant]
     Indication: INSOMNIA
     Dosage: 0.25 MG, UNK
     Route: 048
     Dates: start: 20110221, end: 20130110
  20. CRAVIT [Concomitant]
     Dosage: 500 MG, UNK
     Route: 048
     Dates: start: 20110315, end: 20110804
  21. CRAVIT [Concomitant]
     Dosage: 500 MG
     Route: 048
     Dates: end: 20110804
  22. BISOLVON [Concomitant]
     Indication: BRONCHITIS CHRONIC
     Dosage: 12 MG, UNK
     Route: 048
     Dates: start: 20110315, end: 20110322
  23. MAGMITT [Concomitant]
     Indication: CONSTIPATION
     Dosage: 1500 MG, UNK
     Dates: start: 20110324
  24. HUMAN RED BLOOD CELLS [Concomitant]
     Indication: GASTROINTESTINAL ANGIODYSPLASIA
     Dosage: 2 IU, UNK
     Dates: start: 20110108
  25. HUMAN RED BLOOD CELLS [Concomitant]
     Dosage: 2 IU, UNK
  26. HUMAN RED BLOOD CELLS [Concomitant]
     Dosage: 2 IU, UNK
  27. HUMAN RED BLOOD CELLS [Concomitant]
     Dosage: 2 IU, UNK
     Dates: end: 20110407
  28. TAKEPRON [Concomitant]
     Indication: PROPHYLAXIS
     Dosage: 15 MG, UNK
     Route: 048
     Dates: start: 20120727

REACTIONS (4)
  - Lipase increased [Recovered/Resolved]
  - Haematochezia [Recovered/Resolved]
  - Peripheral arterial occlusive disease [Recovering/Resolving]
  - Eosinophil percentage increased [Recovered/Resolved]
